FAERS Safety Report 14095473 (Version 1)
Quarter: 2017Q4

REPORT INFORMATION
  Report Type: Report from Study
  Country: US (occurrence: US)
  Receive Date: 20171017
  Receipt Date: 20171017
  Transmission Date: 20180321
  Serious: Yes (Hospitalization)
  Sender: FDA-Public Use
  Company Number: US-ROCHE-2008770

PATIENT
  Age: 71 Year
  Sex: Male
  Weight: 88.53 kg

DRUGS (1)
  1. ESBRIET [Suspect]
     Active Substance: PIRFENIDONE
     Indication: IDIOPATHIC PULMONARY FIBROSIS
     Dosage: 3 PILLS 3 TIMES DAILY
     Route: 048
     Dates: start: 20170816, end: 20170901

REACTIONS (3)
  - Platelet count decreased [Recovering/Resolving]
  - Dizziness [Unknown]
  - Asthenia [Unknown]

NARRATIVE: CASE EVENT DATE: 20170901
